FAERS Safety Report 26001171 (Version 4)
Quarter: 2025Q4

REPORT INFORMATION
  Report Type: Spontaneous
  Country: EU (occurrence: EU)
  Receive Date: 20251105
  Receipt Date: 20251201
  Transmission Date: 20260117
  Serious: Yes (Hospitalization, Other)
  Sender: PFIZER
  Company Number: EU-PFIZER INC-PV202500129056

PATIENT
  Age: 63 Year
  Sex: Male

DRUGS (7)
  1. TALAZOPARIB [Suspect]
     Active Substance: TALAZOPARIB
     Indication: Prostate cancer
     Dosage: 0.5 MG, 1X/DAY (24H)
     Route: 065
     Dates: start: 202408, end: 202412
  2. TALAZOPARIB [Suspect]
     Active Substance: TALAZOPARIB
     Dosage: 0.35 MG, 1X/DAY
     Route: 065
     Dates: start: 202501, end: 202503
  3. TALAZOPARIB [Suspect]
     Active Substance: TALAZOPARIB
     Dosage: 0.35 MG, 1X/DAY
     Route: 065
     Dates: start: 2025, end: 202508
  4. TALAZOPARIB [Suspect]
     Active Substance: TALAZOPARIB
     Dosage: 0.25 MG, 1X/DAY
     Route: 065
     Dates: start: 202509
  5. ENZALUTAMIDE [Suspect]
     Active Substance: ENZALUTAMIDE
     Indication: Prostate cancer
     Dosage: 160 MG, 1X/DAY (24H)
     Route: 065
     Dates: start: 202408, end: 202503
  6. ABIRATERONE [Concomitant]
     Active Substance: ABIRATERONE
     Dosage: 1000 MG, 1X/DAY
     Route: 065
  7. DEXAMETHASONE [Concomitant]
     Active Substance: DEXAMETHASONE
     Dosage: UNK
     Route: 065

REACTIONS (3)
  - Arteriosclerosis [Unknown]
  - Transient ischaemic attack [Unknown]
  - Anaemia [Unknown]

NARRATIVE: CASE EVENT DATE: 20241201
